FAERS Safety Report 5480150-1 (Version None)
Quarter: 2007Q4

REPORT INFORMATION
  Report Type: 
  Country: None (occurrence: None)
  Receive Date: 20071009
  Receipt Date: 20071001
  Transmission Date: 20080405
  Serious: Yes (Hospitalization)
  Sender: FDA-Public Use
  Company Number: DE-JNJFOC-20070904856

PATIENT
  Age: 41 Year
  Sex: Female

DRUGS (3)
  1. REMICADE [Suspect]
     Route: 042
  2. REMICADE [Suspect]
     Indication: POLYARTERITIS NODOSA
     Dosage: 2 INFUSIONS
     Route: 042
  3. PREDNISOLONE [Concomitant]
     Indication: POLYARTERITIS NODOSA
     Route: 048

REACTIONS (1)
  - SUBARACHNOID HAEMORRHAGE [None]
